FAERS Safety Report 5307871-5 (Version None)
Quarter: 2007Q2

REPORT INFORMATION
  Report Type: 
  Country: None (occurrence: None)
  Receive Date: 20070425
  Receipt Date: 20070312
  Transmission Date: 20071010
  Serious: Yes (Other)
  Sender: FDA-Public Use
  Company Number: US-SANOFI-SYNTHELABO-A03200702286

PATIENT
  Sex: Female

DRUGS (3)
  1. EFFEXOR [Concomitant]
     Dosage: UNK
     Route: 048
  2. PROZAC [Concomitant]
     Dosage: UNK
     Route: 048
  3. AMBIEN [Suspect]
     Indication: INSOMNIA
     Dosage: UNK
     Route: 048
     Dates: start: 19990101, end: 20060415

REACTIONS (9)
  - AMNESIA [None]
  - DRUG ABUSER [None]
  - EMOTIONAL DISTRESS [None]
  - HALLUCINATION [None]
  - INCOHERENT [None]
  - INTENTIONAL SELF-INJURY [None]
  - SLEEP TALKING [None]
  - SLEEP WALKING [None]
  - THERMAL BURN [None]
